FAERS Safety Report 5633386-0 (Version None)
Quarter: 2008Q1

REPORT INFORMATION
  Report Type: 
  Country: None (occurrence: None)
  Receive Date: 20080221
  Receipt Date: 20080218
  Transmission Date: 20080703
  Serious: Yes (Life-Threatening)
  Sender: FDA-Public Use
  Company Number: GB-ASTRAZENECA-2008AC00489

PATIENT
  Age: 62 Year
  Sex: Male

DRUGS (5)
  1. ATENOLOL [Suspect]
  2. CONTRAST [Suspect]
     Route: 042
  3. HYDROCORTISONE [Concomitant]
     Indication: PROPHYLAXIS
  4. EPINEPHRINE [Concomitant]
     Indication: BLOOD PRESSURE
  5. NITRATE [Concomitant]

REACTIONS (1)
  - PHAEOCHROMOCYTOMA [None]
